FAERS Safety Report 25649252 (Version 2)
Quarter: 2025Q4

REPORT INFORMATION
  Report Type: Report from Study
  Country: US (occurrence: US)
  Receive Date: 20250806
  Receipt Date: 20251024
  Transmission Date: 20260118
  Serious: Yes (Hospitalization, Other)
  Sender: TAKEDA
  Company Number: US-TAKEDA-2025TUS069073

PATIENT
  Sex: Male

DRUGS (2)
  1. PONATINIB [Suspect]
     Active Substance: PONATINIB
     Indication: Product used for unknown indication
     Dosage: 30 MILLIGRAM, QD
  2. PONATINIB [Suspect]
     Active Substance: PONATINIB
     Dosage: 15 MILLIGRAM, QD
     Dates: start: 20251013

REACTIONS (2)
  - Leukaemia [Recovering/Resolving]
  - Product dose omission issue [Unknown]
